FAERS Safety Report 4998610-6 (Version None)
Quarter: 2006Q2

REPORT INFORMATION
  Report Type: 
  Country: None (occurrence: None)
  Receive Date: 20060509
  Receipt Date: 20060426
  Transmission Date: 20061013
  Serious: Yes (Hospitalization)
  Sender: FDA-Public Use
  Company Number: 224511

PATIENT
  Age: 31 Year
  Sex: Male

DRUGS (11)
  1. MABTHERA (RITUXIMAB) CON FOR SOLUTION FOR INFUSION [Suspect]
     Indication: B-CELL LYMPHOMA
     Dosage: 737 MG, INTRAVENOUS
     Route: 042
     Dates: start: 20051221, end: 20060209
  2. BACTRIM DS [Suspect]
     Indication: INFECTION PROPHYLAXIS
     Dosage: 3 TABLETM ORAL
     Route: 048
     Dates: start: 20051222, end: 20060314
  3. ELDISINE [Suspect]
     Indication: B-CELL LYMPHOMA
     Dosage: 3.94 MG, INTRAVENOUS
     Route: 042
     Dates: start: 20051221, end: 20060213
  4. VALACYCLOVIR [Suspect]
     Indication: INFECTION PROPHYLAXIS
     Dosage: 1 G, QD, ORAL
     Route: 048
     Dates: start: 20051222, end: 20060314
  5. DOXORUBICIN HYDROCHLORIDE [Suspect]
     Indication: B-CELL LYMPHOMA
     Dosage: 147.8 MG, INTRAVENOUS
     Route: 042
     Dates: start: 20051221, end: 20060209
  6. CYCLOPHOSPHAMIDE [Suspect]
     Indication: B-CELL LYMPHOMA
     Dosage: 2360 MG, INTRAVENOUS
     Route: 042
     Dates: start: 20051221, end: 20060209
  7. METHOTREXATE [Concomitant]
  8. BLEOMYCIN SULFATE [Concomitant]
  9. CYCLOPHOSPHAMIDE [Concomitant]
  10. NEULASTA [Concomitant]
  11. PREDNISONE TAB [Concomitant]

REACTIONS (1)
  - HEPATITIS TOXIC [None]
